FAERS Safety Report 6879441-9 (Version None)
Quarter: 2010Q3

REPORT INFORMATION
  Report Type: 
  Country: None (occurrence: None)
  Receive Date: 20100728
  Receipt Date: 20100721
  Transmission Date: 20110219
  Serious: Yes (Other)
  Sender: FDA-Public Use
  Company Number: GB-ASTRAZENECA-2010SE33976

PATIENT
  Age: 64 Year
  Sex: Male
  Weight: 108 kg

DRUGS (9)
  1. ROSUVASTATIN [Suspect]
     Indication: HYPERCHOLESTEROLAEMIA
     Route: 048
  2. ASPIRIN [Concomitant]
  3. BENDROFLUMETHIAZIDE [Concomitant]
  4. INSULIN GLARGINE [Concomitant]
  5. LOSARTAN POSTASSIUM [Concomitant]
  6. MYCOPHENOLATE MOFETIL [Concomitant]
  7. NOVORAPID [Concomitant]
  8. OMEPRAZOLE [Concomitant]
  9. PREDNISOLONE [Concomitant]

REACTIONS (4)
  - AMNESIA [None]
  - DEPRESSION [None]
  - LETHARGY [None]
  - RASH [None]
